FAERS Safety Report 6811389-8 (Version None)
Quarter: 2010Q2

REPORT INFORMATION
  Report Type: 
  Country: None (occurrence: None)
  Receive Date: 20100630
  Receipt Date: 20100408
  Transmission Date: 20101027
  Serious: No
  Sender: FDA-Public Use
  Company Number: US-AMGEN-KDL405869

PATIENT
  Sex: Female
  Weight: 31.3 kg

DRUGS (8)
  1. PROCRIT [Suspect]
     Indication: RENAL FAILURE CHRONIC
     Dates: start: 20100120, end: 20100318
  2. NIFEDIPINE [Concomitant]
  3. CRESTOR [Concomitant]
  4. LASIX [Concomitant]
  5. GLIPIZIDE [Concomitant]
  6. ACTOS [Concomitant]
  7. MULTI-VITAMINS [Concomitant]
  8. CLARITIN [Concomitant]

REACTIONS (4)
  - AGEUSIA [None]
  - DYSGEUSIA [None]
  - PARAESTHESIA ORAL [None]
  - TONGUE DISORDER [None]
